FAERS Safety Report 7489464-7 (Version None)
Quarter: 2011Q2

REPORT INFORMATION
  Report Type: 
  Country: None (occurrence: None)
  Receive Date: 20110518
  Receipt Date: 20110512
  Transmission Date: 20111010
  Serious: Yes (Other)
  Sender: FDA-Public Use
  Company Number: US-RB-026953-11

PATIENT
  Age: 59 Year
  Sex: Male

DRUGS (1)
  1. SUBOXONE [Suspect]
     Indication: PRODUCT USED FOR UNKNOWN INDICATION
     Dosage: DOSING INFORMATION UNKNOWN
     Route: 065

REACTIONS (6)
  - INTENTIONAL OVERDOSE [None]
  - CONDITION AGGRAVATED [None]
  - THERMAL BURN [None]
  - HYPERHIDROSIS [None]
  - PROSTATE CANCER [None]
  - TOOTH DISORDER [None]
